FAERS Safety Report 23614319 (Version 1)
Quarter: 2024Q1

REPORT INFORMATION
  Report Type: Report from Study
  Country: BE (occurrence: BE)
  Receive Date: 20240311
  Receipt Date: 20240311
  Transmission Date: 20240410
  Serious: Yes (Hospitalization)
  Sender: FDA-Public Use
  Company Number: BE-ABBVIE-5669474

PATIENT
  Sex: Female

DRUGS (10)
  1. CARBIDOPA\LEVODOPA [Suspect]
     Active Substance: CARBIDOPA\LEVODOPA
     Indication: Parkinson^s disease
     Route: 050
     Dates: start: 20230315, end: 20230622
  2. CARBIDOPA\LEVODOPA [Suspect]
     Active Substance: CARBIDOPA\LEVODOPA
     Dosage: MD: 6.0 ML, CD: 3.2 ML/H, ED: 2.7 ML DURING 16 HOURS
     Route: 050
     Dates: start: 20231108, end: 20231129
  3. CARBIDOPA\LEVODOPA [Suspect]
     Active Substance: CARBIDOPA\LEVODOPA
     Dosage: MD: 0.0 ML, ED: 2.5 ML DURING 16 HOURS
     Route: 050
     Dates: start: 20230622, end: 20230627
  4. CARBIDOPA\LEVODOPA [Suspect]
     Active Substance: CARBIDOPA\LEVODOPA
     Dosage: MD: 6.0 ML, CD: 3.0 ML/H, ED: 2.5 ML DURING 16 HOURS
     Route: 050
     Dates: start: 20230824, end: 20231108
  5. CARBIDOPA\LEVODOPA [Suspect]
     Active Substance: CARBIDOPA\LEVODOPA
     Dosage: MD: 6.0 ML, CD: 3.4 ML/H, ED: 2.7 ML DURING 16 HOURS
     Route: 050
     Dates: start: 20231129
  6. CARBIDOPA\LEVODOPA [Suspect]
     Active Substance: CARBIDOPA\LEVODOPA
     Dosage: MD: 6.0 ML, CD: 2.9 ML/H DURING 16 HOURS
     Route: 050
     Dates: start: 20230703, end: 20230824
  7. CARBIDOPA\LEVODOPA [Suspect]
     Active Substance: CARBIDOPA\LEVODOPA
     Dosage: MD: 6.5 ML, CD: 2.9 ML/H DURING 16 HOURS
     Route: 050
     Dates: start: 20230627, end: 20230703
  8. BENSERAZIDE\LEVODOPA [Concomitant]
     Active Substance: BENSERAZIDE\LEVODOPA
     Indication: Product used for unknown indication
     Dosage: HBS?- FORM STRENGTH: 125?FREQUENCY TEXT: 22.00
  9. STALEVO [Concomitant]
     Active Substance: CARBIDOPA\ENTACAPONE\LEVODOPA
     Indication: Product used for unknown indication
     Dosage: FORM STRENGTH: 150?FREQUENCY TEXT: 06.00, 08.00, 10.00, 12.00, 16.00, 18.00
  10. XADAGO [Concomitant]
     Active Substance: SAFINAMIDE MESYLATE
     Indication: Product used for unknown indication

REACTIONS (6)
  - Autonomic nervous system imbalance [Unknown]
  - Cognitive disorder [Unknown]
  - Fall [Unknown]
  - Incoherent [Unknown]
  - Disorganised speech [Unknown]
  - Wheelchair user [Unknown]
